FAERS Safety Report 9032065 (Version 2)
Quarter: 2013Q1

REPORT INFORMATION
  Report Type: Spontaneous
  Country: US (occurrence: US)
  Receive Date: 20130125
  Receipt Date: 20130214
  Transmission Date: 20140127
  Serious: No
  Sender: FDA-Public Use
  Company Number: US-PFIZER INC-2013031259

PATIENT
  Age: 55 Year
  Sex: Male
  Weight: 68.93 kg

DRUGS (4)
  1. LYRICA [Suspect]
     Indication: FIBROMYALGIA
     Dosage: 150 MG, 3X/DAY
     Route: 048
  2. LYRICA [Suspect]
     Indication: CHRONIC FATIGUE SYNDROME
     Dosage: 150 MG, 3X/DAY
     Route: 048
  3. LYRICA [Suspect]
     Indication: HERPES ZOSTER
  4. CLONAZEPAM [Concomitant]
     Dosage: UNK

REACTIONS (6)
  - Off label use [Unknown]
  - Hypoaesthesia [Unknown]
  - Burning sensation [Unknown]
  - Herpes zoster [Unknown]
  - Pain in extremity [Unknown]
  - Pain in extremity [Unknown]
